FAERS Safety Report 5463541-4 (Version None)
Quarter: 2007Q3

REPORT INFORMATION
  Report Type: 
  Country: None (occurrence: None)
  Receive Date: 20070920
  Receipt Date: 20070917
  Transmission Date: 20080115
  Serious: Yes (Hospitalization, Other)
  Sender: FDA-Public Use
  Company Number: US-SHR-US-2007-024421

PATIENT
  Age: 60 Year
  Sex: Female
  Weight: 68 kg

DRUGS (6)
  1. CLIMARA PRO [Suspect]
     Dosage: .045/.015 MG/DAY
     Route: 062
     Dates: start: 20060501, end: 20070103
  2. CLIMARA PRO [Suspect]
     Dosage: .045/.015 MG/DAY
     Dates: start: 20020101, end: 20030101
  3. CALCIUM [Concomitant]
  4. ASCORBIC ACID [Concomitant]
  5. M.V.I. [Concomitant]
  6. FOLIC ACID [Concomitant]

REACTIONS (5)
  - APPLICATION SITE ERYTHEMA [None]
  - APPLICATION SITE PRURITUS [None]
  - MEDICATION ERROR [None]
  - METRORRHAGIA [None]
  - UTERINE MASS [None]
